FAERS Safety Report 11589857 (Version 1)
Quarter: 2015Q4

REPORT INFORMATION
  Report Type: Spontaneous
  Country: FR (occurrence: FR)
  Receive Date: 20151002
  Receipt Date: 20151002
  Transmission Date: 20160304
  Serious: Yes (Hospitalization)
  Sender: FDA-Public Use
  Company Number: PHHY2015FR117556

PATIENT
  Age: 71 Year
  Sex: Female

DRUGS (1)
  1. TASIGNA [Suspect]
     Active Substance: NILOTINIB
     Indication: CHRONIC MYELOID LEUKAEMIA
     Dosage: 300 MG, QD (1 DF, QD)
     Route: 048
     Dates: start: 20150130, end: 20150901

REACTIONS (1)
  - Keratitis [Unknown]

NARRATIVE: CASE EVENT DATE: 20150228
